FAERS Safety Report 5839496-7 (Version None)
Quarter: 2008Q3

REPORT INFORMATION
  Report Type: 
  Country: None (occurrence: None)
  Receive Date: 20080807
  Receipt Date: 20080722
  Transmission Date: 20090109
  Serious: Yes (Life-Threatening)
  Sender: FDA-Public Use
  Company Number: 8031676

PATIENT
  Age: 7 Year
  Sex: Male
  Weight: 22.8 kg

DRUGS (2)
  1. EQUASYM [Suspect]
     Indication: ATTENTION DEFICIT/HYPERACTIVITY DISORDER
     Dosage: 20 MG 1/D PO
     Route: 048
     Dates: start: 20080301, end: 20080101
  2. EQUASYM [Suspect]
     Indication: ATTENTION DEFICIT/HYPERACTIVITY DISORDER
     Dates: start: 20080101

REACTIONS (6)
  - ABSCESS NECK [None]
  - LYMPHADENOPATHY [None]
  - MENINGITIS [None]
  - MENINGITIS PNEUMOCOCCAL [None]
  - SEPSIS [None]
  - UPPER RESPIRATORY TRACT INFECTION [None]
